FAERS Safety Report 6275309-X (Version None)
Quarter: 2009Q3

REPORT INFORMATION
  Report Type: 
  Country: None (occurrence: None)
  Receive Date: 20090721
  Receipt Date: 20090717
  Transmission Date: 20100115
  Serious: Yes (Hospitalization, Other)
  Sender: FDA-Public Use
  Company Number: A0797632A

PATIENT
  Age: 58 Year
  Sex: Female

DRUGS (4)
  1. PROMACTA [Suspect]
     Indication: IDIOPATHIC THROMBOCYTOPENIC PURPURA
     Route: 048
     Dates: start: 20090716
  2. HYDRALAZINE HCL [Concomitant]
  3. CARVEDILOL [Concomitant]
  4. SIMVASTATIN [Concomitant]

REACTIONS (2)
  - ELECTROCARDIOGRAM T WAVE ABNORMAL [None]
  - PAIN [None]
